FAERS Safety Report 18280508 (Version 2)
Quarter: 2020Q4

REPORT INFORMATION
  Report Type: Spontaneous
  Country: BR (occurrence: BR)
  Receive Date: 20200917
  Receipt Date: 20201029
  Transmission Date: 20210113
  Serious: Yes (Other)
  Sender: FDA-Public Use
  Company Number: BR-PURDUE-USA-2020-0166861

PATIENT
  Age: 42 Year
  Sex: Female

DRUGS (1)
  1. RESTIVA [Suspect]
     Active Substance: BUPRENORPHINE
     Indication: INTERVERTEBRAL DISC PROTRUSION
     Dosage: 10 MCG, Q1H (STRENGTH 10 MG)
     Route: 062
     Dates: start: 20200829, end: 20200830

REACTIONS (8)
  - Hypoaesthesia [Recovered/Resolved]
  - Communication disorder [Recovered/Resolved]
  - Malaise [Recovered/Resolved]
  - Hypoaesthesia oral [Recovered/Resolved]
  - Vomiting [Recovered/Resolved]
  - Dizziness [Recovered/Resolved]
  - Liver disorder [Recovered/Resolved]
  - Feeling abnormal [Recovered/Resolved]

NARRATIVE: CASE EVENT DATE: 20200829
